FAERS Safety Report 9003221 (Version 4)
Quarter: 2013Q3

REPORT INFORMATION
  Report Type: Spontaneous
  Country: US (occurrence: US)
  Receive Date: 20130108
  Receipt Date: 20130712
  Transmission Date: 20140515
  Serious: Yes (Hospitalization, Disabling, Other)
  Sender: FDA-Public Use
  Company Number: US-009507513-1202USA04370

PATIENT
  Sex: Female
  Weight: 78.5 kg

DRUGS (6)
  1. FOSAMAX [Suspect]
     Indication: OSTEOPOROSIS
     Dosage: UNK
     Route: 048
     Dates: start: 2001, end: 2002
  2. FOSAMAX [Suspect]
     Dosage: 70 MG, QW
     Route: 048
     Dates: start: 20030105, end: 200512
  3. ALENDRONATE SODIUM [Suspect]
     Indication: OSTEOPOROSIS
     Dosage: 70 MG, UNK
  4. BONIVA [Suspect]
     Indication: OSTEOPOROSIS
     Dosage: 150 MG, QM
     Route: 048
     Dates: start: 20060208, end: 200810
  5. PREVACID [Concomitant]
     Indication: DYSPEPSIA
     Dosage: UNK
     Dates: start: 1990
  6. SYNTHROID [Concomitant]
     Indication: THYROID DISORDER
     Dosage: UNK
     Dates: start: 1990

REACTIONS (34)
  - Intramedullary rod insertion [Unknown]
  - Intramedullary rod insertion [Unknown]
  - Renal failure [Unknown]
  - Tibia fracture [Unknown]
  - Medical device change [Unknown]
  - Bone graft [Unknown]
  - Medical device removal [Unknown]
  - Femur fracture [Unknown]
  - Medical device change [Unknown]
  - Bone graft [Unknown]
  - Cholecystectomy [Unknown]
  - Femur fracture [Recovered/Resolved]
  - Femur fracture [Unknown]
  - Depression [Not Recovered/Not Resolved]
  - Low turnover osteopathy [Unknown]
  - Type 2 diabetes mellitus [Unknown]
  - Fracture nonunion [Recovered/Resolved]
  - Confusional state [Unknown]
  - Ileus [Unknown]
  - Fall [Unknown]
  - Meniscus injury [Unknown]
  - Bone marrow oedema [Unknown]
  - Chondropathy [Unknown]
  - Joint effusion [Unknown]
  - Fall [Unknown]
  - Head injury [Unknown]
  - Device failure [Unknown]
  - Weight decreased [Unknown]
  - Osteoporosis [Not Recovered/Not Resolved]
  - Small intestinal obstruction [Unknown]
  - Arteriosclerosis coronary artery [Unknown]
  - Rotator cuff syndrome [Unknown]
  - Osteoarthritis [Unknown]
  - Headache [Unknown]
